FAERS Safety Report 6100558-0 (Version None)
Quarter: 2009Q1

REPORT INFORMATION
  Report Type: 
  Country: None (occurrence: None)
  Receive Date: 20090303
  Receipt Date: 20090219
  Transmission Date: 20090719
  Serious: Yes (Other)
  Sender: FDA-Public Use
  Company Number: CA-PFIZER INC-2008032818

PATIENT

DRUGS (3)
  1. CHAMPIX [Suspect]
     Indication: SMOKING CESSATION THERAPY
     Dosage: 0.5 MG, 1X/DAY
     Route: 048
     Dates: start: 20071021
  2. TYLENOL NO.1 FORTE [Suspect]
     Indication: HEADACHE
     Dosage: 1.5 MG, AS NEEDED
     Route: 048
     Dates: start: 20070101
  3. COTYLENOL [Suspect]

REACTIONS (7)
  - ANXIETY [None]
  - CHEST DISCOMFORT [None]
  - COLD SWEAT [None]
  - HEADACHE [None]
  - SKIN BURNING SENSATION [None]
  - TACHYCARDIA [None]
  - THROAT TIGHTNESS [None]
